FAERS Safety Report 8071019-7 (Version None)
Quarter: 2012Q1

REPORT INFORMATION
  Report Type: 
  Country: None (occurrence: None)
  Receive Date: 20120125
  Receipt Date: 20120120
  Transmission Date: 20120608
  Serious: No
  Sender: FDA-Public Use
  Company Number: US-BAYER-2012-007790

PATIENT
  Age: 65 Year
  Sex: Female
  Weight: 71 kg

DRUGS (3)
  1. ENALAPRIL MALEATE [Concomitant]
  2. SIMVASTATIN [Concomitant]
  3. NAPROXEN (ALEVE) [Suspect]
     Indication: BACK PAIN
     Dosage: UNK
     Route: 048
     Dates: end: 20120120

REACTIONS (1)
  - ANXIETY [None]
